FAERS Safety Report 25061638 (Version 3)
Quarter: 2025Q2

REPORT INFORMATION
  Report Type: Spontaneous
  Country: US (occurrence: US)
  Receive Date: 20250311
  Receipt Date: 20250514
  Transmission Date: 20250716
  Serious: No
  Sender: NOVO NORDISK
  Company Number: US-NOVOPROD-1383726

PATIENT
  Age: 73 Year
  Sex: Male
  Weight: 108.39 kg

DRUGS (1)
  1. OZEMPIC [Suspect]
     Active Substance: SEMAGLUTIDE
     Indication: Type 2 diabetes mellitus
     Dosage: 2 MG, QW
     Route: 058
     Dates: start: 202304

REACTIONS (6)
  - Impaired healing [Unknown]
  - Vision blurred [Unknown]
  - Photophobia [Unknown]
  - Visual impairment [Unknown]
  - Wrong technique in product usage process [Unknown]
  - Product communication issue [Unknown]
